FAERS Safety Report 7866677-3 (Version None)
Quarter: 2011Q4

REPORT INFORMATION
  Report Type: 
  Country: None (occurrence: None)
  Receive Date: 20111028
  Receipt Date: 20110727
  Transmission Date: 20120403
  Serious: No
  Sender: FDA-Public Use
  Company Number: US-GLAXOSMITHKLINE-A0938538A

PATIENT
  Age: 76 Year
  Sex: Female

DRUGS (7)
  1. ADVAIR DISKUS 100/50 [Suspect]
     Indication: ASTHMA
     Dosage: 1PUFF TWICE PER DAY
     Route: 055
     Dates: start: 20060101
  2. NEXIUM [Concomitant]
  3. FLECAINIDE ACETATE [Concomitant]
  4. ASPIRIN [Concomitant]
  5. POTASSIUM [Concomitant]
  6. LIPITOR [Concomitant]
  7. DILTIAZEM HCL [Concomitant]

REACTIONS (4)
  - PRODUCT QUALITY ISSUE [None]
  - DYSPHONIA [None]
  - DYSPNOEA [None]
  - DRUG INEFFECTIVE [None]
